FAERS Safety Report 24585734 (Version 1)
Quarter: 2024Q4

REPORT INFORMATION
  Report Type: Report from Study
  Country: US (occurrence: US)
  Receive Date: 20241106
  Receipt Date: 20241106
  Transmission Date: 20250114
  Serious: Yes (Other)
  Sender: UCB
  Company Number: US-UCBSA-2024056598

PATIENT
  Age: 7 Year
  Sex: Male
  Weight: 20.7 kg

DRUGS (1)
  1. FINTEPLA [Suspect]
     Active Substance: FENFLURAMINE
     Indication: Lennox-Gastaut syndrome
     Dosage: 14.08 MILLIGRAM PER DAY
     Dates: start: 202312

REACTIONS (1)
  - Tricuspid valve incompetence [Unknown]

NARRATIVE: CASE EVENT DATE: 20241015
